FAERS Safety Report 24305219 (Version 1)
Quarter: 2024Q3

REPORT INFORMATION
  Report Type: Spontaneous
  Country: US (occurrence: US)
  Receive Date: 20240911
  Receipt Date: 20240911
  Transmission Date: 20241017
  Serious: No
  Sender: AUROBINDO
  Company Number: US-AUROBINDO-AUR-APL-2024-009667

PATIENT
  Age: 77 Year
  Sex: Female

DRUGS (2)
  1. ALPRAZOLAM [Suspect]
     Active Substance: ALPRAZOLAM
     Indication: Insomnia
     Dosage: UNK, QUARTER OF 01 MG LIKE A 0.25 MG,GOT DOWN TO 1/16 TH OF THE FILL, TAKING IT EVERY OTHER NIGHT, P
     Route: 065
     Dates: start: 202310
  2. BENADRYL [Concomitant]
     Active Substance: DIPHENHYDRAMINE HYDROCHLORIDE
     Indication: Hypersensitivity
     Dosage: UNK
     Route: 065

REACTIONS (2)
  - Hangover [Unknown]
  - Therapy cessation [Unknown]
